FAERS Safety Report 6175390-2 (Version None)
Quarter: 2009Q2

REPORT INFORMATION
  Report Type: 
  Country: None (occurrence: None)
  Receive Date: 20090430
  Receipt Date: 20080711
  Transmission Date: 20091009
  Serious: No
  Sender: FDA-Public Use
  Company Number: US-ASTRAZENECA-2008UW13952

PATIENT

DRUGS (1)
  1. NEXIUM [Suspect]
     Dosage: 20 MG IV
     Route: 042

REACTIONS (1)
  - INFUSION SITE EXTRAVASATION [None]
